FAERS Safety Report 5225771-6 (Version None)
Quarter: 2007Q1

REPORT INFORMATION
  Report Type: 
  Country: None (occurrence: None)
  Receive Date: 20070131
  Receipt Date: 20070131
  Transmission Date: 20070707
  Serious: Yes (Hospitalization)
  Sender: FDA-Public Use
  Company Number: None

PATIENT
  Age: 73 Year
  Sex: Male

DRUGS (10)
  1. REVLIMID [Suspect]
     Indication: MYELODYSPLASTIC SYNDROME
     Dosage: 10MG DAILY PO
     Route: 048
  2. ZYPREXA [Concomitant]
  3. TRANXENE [Concomitant]
  4. OMEPRAZOLE [Concomitant]
  5. REMERON [Concomitant]
  6. PREDNISOLONE [Concomitant]
  7. VICODIN [Concomitant]
  8. MORPHINE [Concomitant]
  9. SODIUM PHOSPHATES [Concomitant]
  10. PREDNISONE [Concomitant]

REACTIONS (4)
  - HAEMATOCRIT DECREASED [None]
  - HAEMOGLOBIN DECREASED [None]
  - PAROTITIS [None]
  - PLATELET COUNT DECREASED [None]
